FAERS Safety Report 8025009-0 (Version None)
Quarter: 2012Q1

REPORT INFORMATION
  Report Type: 
  Country: None (occurrence: None)
  Receive Date: 20120105
  Receipt Date: 20120104
  Transmission Date: 20120608
  Serious: Yes (Hospitalization)
  Sender: FDA-Public Use
  Company Number: GB-AMGEN-GBRCT2011069648

PATIENT
  Age: 57 Year
  Sex: Female

DRUGS (3)
  1. DOCETAXEL [Suspect]
     Dosage: UNK MG, UNK
     Route: 042
     Dates: start: 20111026, end: 20111207
  2. FLUCLOXACILLIN [Concomitant]
     Dosage: 500 MG, UNK
     Dates: start: 20111227, end: 20120101
  3. PLACEBO [Suspect]
     Indication: BREAST CANCER
     Dosage: 120 MG, UNK
     Dates: start: 20110928

REACTIONS (1)
  - NAIL BED BLEEDING [None]
